FAERS Safety Report 13909943 (Version 2)
Quarter: 2017Q3

REPORT INFORMATION
  Report Type: Report from Study
  Country: IL (occurrence: IL)
  Receive Date: 20170828
  Receipt Date: 20170919
  Transmission Date: 20171127
  Serious: Yes (Hospitalization)
  Sender: FDA-Public Use
  Company Number: IL-ACTELION-A-CH2017-154954

PATIENT
  Age: 71 Year
  Sex: Female

DRUGS (6)
  1. NORMITEN [Concomitant]
     Active Substance: ATENOLOL
  2. SILDENAFIL CITRATE. [Concomitant]
     Active Substance: SILDENAFIL CITRATE
  3. OPSUMIT [Concomitant]
     Active Substance: MACITENTAN
     Indication: PULMONARY ARTERIAL HYPERTENSION
     Dosage: 10 MG, QD
     Route: 048
  4. UPTRAVI [Suspect]
     Active Substance: SELEXIPAG
     Indication: PULMONARY ARTERIAL HYPERTENSION
     Dosage: 200 ?G, BID
     Route: 048
     Dates: start: 20170528, end: 2017
  5. ELTROXIN [Concomitant]
     Active Substance: LEVOTHYROXINE
  6. ENALAPRIL [Concomitant]
     Active Substance: ENALAPRIL

REACTIONS (10)
  - Anaesthetic complication [Unknown]
  - Diarrhoea [Recovering/Resolving]
  - Localised infection [Unknown]
  - Pain in extremity [Not Recovered/Not Resolved]
  - Hypothyroidism [Recovered/Resolved]
  - Concomitant disease aggravated [Recovered/Resolved]
  - Soft tissue mass [Unknown]
  - Calcinosis [Unknown]
  - Blood thyroid stimulating hormone increased [Recovered/Resolved]
  - Headache [Not Recovered/Not Resolved]

NARRATIVE: CASE EVENT DATE: 201706
